FAERS Safety Report 7553813-1 (Version None)
Quarter: 2011Q2

REPORT INFORMATION
  Report Type: 
  Country: None (occurrence: None)
  Receive Date: 20110614
  Receipt Date: 20110614
  Transmission Date: 20111010
  Serious: Yes (Life-Threatening, Hospitalization, Other)
  Sender: FDA-Public Use
  Company Number: None

PATIENT
  Age: 11 Year
  Sex: Female
  Weight: 31.7518 kg

DRUGS (1)
  1. COZAAR [Suspect]
     Indication: CREATININE URINE INCREASED
     Dosage: 12.5 MG DAILY PO
     Route: 048
     Dates: start: 20071201, end: 20090301

REACTIONS (13)
  - MYALGIA [None]
  - DYSGRAPHIA [None]
  - PULMONARY OEDEMA [None]
  - GAIT DISTURBANCE [None]
  - SKIN EXFOLIATION [None]
  - PAIN [None]
  - ACTIVITIES OF DAILY LIVING IMPAIRED [None]
  - HAEMOLYTIC ANAEMIA [None]
  - EDUCATIONAL PROBLEM [None]
  - UNRESPONSIVE TO STIMULI [None]
  - MUSCULOSKELETAL STIFFNESS [None]
  - OEDEMA PERIPHERAL [None]
  - ARTHRALGIA [None]
